FAERS Safety Report 10048083 (Version 1)
Quarter: 2014Q1

REPORT INFORMATION
  Report Type: Spontaneous
  Country: US (occurrence: US)
  Receive Date: 20140331
  Receipt Date: 20140331
  Transmission Date: 20141002
  Serious: No
  Sender: FDA-Public Use
  Company Number: US-PFIZER INC-2014086421

PATIENT
  Sex: Female

DRUGS (3)
  1. CYTOMEL [Suspect]
     Dosage: 50 UG, UNK
  2. CYTOMEL [Suspect]
     Dosage: 10 UG (TWO 5 MCG TOGETHER), UNK
  3. SYNTHROID [Suspect]
     Dosage: 100 UG, UNK

REACTIONS (5)
  - Anxiety [Unknown]
  - Weight increased [Unknown]
  - Depression [Unknown]
  - Asthenia [Unknown]
  - Alopecia [Unknown]
